FAERS Safety Report 14704276 (Version 1)
Quarter: 2018Q2

REPORT INFORMATION
  Report Type: Spontaneous
  Country: US (occurrence: US)
  Receive Date: 20180402
  Receipt Date: 20180402
  Transmission Date: 20180711
  Serious: No
  Sender: FDA-Public Use
  Company Number: US-ALLERGAN-1749637US

PATIENT
  Sex: Male

DRUGS (2)
  1. MESALAZINE - BP [Suspect]
     Active Substance: MESALAMINE
     Dosage: 1600 MG, TID
     Route: 048
     Dates: start: 201703
  2. MESALAZINE - BP [Suspect]
     Active Substance: MESALAMINE
     Indication: COLITIS ULCERATIVE
     Dosage: UNK UNK, TID
     Route: 048
     Dates: start: 201612, end: 201703

REACTIONS (2)
  - Laboratory test abnormal [Not Recovered/Not Resolved]
  - Drug ineffective [Unknown]
